FAERS Safety Report 8495329-4 (Version None)
Quarter: 2012Q3

REPORT INFORMATION
  Report Type: 
  Country: None (occurrence: None)
  Receive Date: 20120702
  Receipt Date: 20120702
  Transmission Date: 20120928
  Serious: Yes (Other)
  Sender: FDA-Public Use
  Company Number: None

PATIENT
  Sex: Female

DRUGS (4)
  1. TRAMADOL HYDROCODON [Concomitant]
  2. PRANTAPRAZOLE [Concomitant]
  3. LISINOPRIL [Suspect]
     Indication: HYPERTENSION
     Dosage: 40 MG, ONCE A DAY, PO
     Route: 048
     Dates: start: 20080608, end: 20120103
  4. LYRICA [Concomitant]

REACTIONS (2)
  - PAIN [None]
  - DEPRESSION [None]
